FAERS Safety Report 5675980-7 (Version None)
Quarter: 2008Q1

REPORT INFORMATION
  Report Type: 
  Country: None (occurrence: None)
  Receive Date: 20080318
  Receipt Date: 20080229
  Transmission Date: 20080703
  Serious: Yes (Other)
  Sender: FDA-Public Use
  Company Number: US-1165328

PATIENT
  Sex: Female
  Weight: 63.5036 kg

DRUGS (12)
  1. SYSTANE EYE DROPS [Suspect]
     Indication: DRY EYE
     Dosage: (ONE DROP BOTH EYES FIVE TIMES A DAY OPHTHALMIC), (ONE DROP BOTH EYES FIVE TIMES A DAY OPHTHALMIC)
     Route: 047
     Dates: start: 20080101, end: 20080101
  2. SYSTANE EYE DROPS [Suspect]
     Indication: DRY EYE
     Dosage: (ONE DROP BOTH EYES FIVE TIMES A DAY OPHTHALMIC), (ONE DROP BOTH EYES FIVE TIMES A DAY OPHTHALMIC)
     Route: 047
     Dates: start: 20080109, end: 20080120
  3. SYSTANE EYE DROPS [Suspect]
  4. TIMOLOL MALEATE [Concomitant]
  5. LEVOTHYROXINE SODIUM [Concomitant]
  6. EVISTA [Concomitant]
  7. ZOLPIDEM [Concomitant]
  8. ISOSORBIDE DINITRATE [Concomitant]
  9. ASPIRIN [Concomitant]
  10. MECLIZINE [Concomitant]
  11. METOPROLOL TARTRATE [Concomitant]
  12. CALCIUM [Concomitant]

REACTIONS (6)
  - CORNEAL DYSTROPHY [None]
  - EXPIRED DRUG ADMINISTERED [None]
  - EYE DISORDER [None]
  - EYELID DISORDER [None]
  - EYELID OEDEMA [None]
  - VISUAL ACUITY REDUCED [None]
